FAERS Safety Report 7475535-8 (Version None)
Quarter: 2011Q2

REPORT INFORMATION
  Report Type: 
  Country: None (occurrence: None)
  Receive Date: 20110512
  Receipt Date: 20110509
  Transmission Date: 20111010
  Serious: Yes (Death, Hospitalization, Other)
  Sender: FDA-Public Use
  Company Number: PHHY2011BR38846

PATIENT
  Sex: Male
  Weight: 110 kg

DRUGS (2)
  1. DIOVAN [Suspect]
     Indication: HYPERTENSION
     Dosage: 320 MG IN MORNING
     Route: 048
  2. AMLOVASC [Concomitant]
     Dosage: 1 DF,10 MG
     Route: 048

REACTIONS (10)
  - VENTRICULAR FIBRILLATION [None]
  - DIABETES MELLITUS [None]
  - THROMBOSIS [None]
  - PAIN IN EXTREMITY [None]
  - ARTERIAL OCCLUSIVE DISEASE [None]
  - INFARCTION [None]
  - SHOCK HAEMORRHAGIC [None]
  - ARTERIAL THROMBOSIS [None]
  - HYPERTENSION [None]
  - ANEURYSM [None]
